FAERS Safety Report 5832361-0 (Version None)
Quarter: 2008Q3

REPORT INFORMATION
  Report Type: 
  Country: None (occurrence: None)
  Receive Date: 20080804
  Receipt Date: 20080728
  Transmission Date: 20090109
  Serious: Yes (Life-Threatening, Hospitalization)
  Sender: FDA-Public Use
  Company Number: US-AVENTIS-200715806US

PATIENT
  Sex: Male
  Weight: 90.45 kg

DRUGS (14)
  1. KETEK [Suspect]
     Dosage: DOSE: UNK
     Route: 048
  2. KETEK [Suspect]
     Dosage: DOSE: UNK
     Route: 048
     Dates: start: 20060101, end: 20060101
  3. TYLENOL (CAPLET) [Suspect]
     Dosage: DOSE: UNK
  4. LANSOPRAZOLE [Concomitant]
  5. THEOPHYLLINE [Concomitant]
  6. ATROVENT [Concomitant]
     Dosage: DOSE: METERED DOSE INHALER
  7. ALBUTEROL [Concomitant]
     Dosage: DOSE: VIA NEBULIZER
  8. LORAZEPAM [Concomitant]
  9. NIFEDIPINE [Concomitant]
  10. GUAIFENESIN [Concomitant]
  11. NITROGLYCERIN [Concomitant]
  12. DEMADEX [Concomitant]
     Dosage: DOSE: 20 EVERY OTHER DAY AS NEEDED
  13. LORATADINE [Concomitant]
  14. LASIX [Concomitant]

REACTIONS (19)
  - ABDOMINAL PAIN [None]
  - ALANINE AMINOTRANSFERASE INCREASED [None]
  - ANTINUCLEAR ANTIBODY POSITIVE [None]
  - ASCITES [None]
  - ASPARTATE AMINOTRANSFERASE INCREASED [None]
  - ASTHENIA [None]
  - BILIRUBIN CONJUGATED INCREASED [None]
  - CHROMATURIA [None]
  - DYSPNOEA [None]
  - FAECES PALE [None]
  - HEPATOTOXICITY [None]
  - JAUNDICE CHOLESTATIC [None]
  - LIVER DISORDER [None]
  - NAUSEA [None]
  - PAIN [None]
  - PORTAL HYPERTENSION [None]
  - RECTAL HAEMORRHAGE [None]
  - SPLENOMEGALY [None]
  - VOMITING [None]
